FAERS Safety Report 10346872 (Version 1)
Quarter: 2014Q3

REPORT INFORMATION
  Report Type: Spontaneous
  Country: US (occurrence: US)
  Receive Date: 20140729
  Receipt Date: 20140729
  Transmission Date: 20150326
  Serious: Yes (Other)
  Sender: FDA-Public Use
  Company Number: US-ASTRAZENECA-2014SE53454

PATIENT
  Sex: Male

DRUGS (8)
  1. METOPROLOL UNSPECIFIED [Suspect]
     Active Substance: METOPROLOL
     Dosage: NOT REPORTED NR
     Route: 065
     Dates: start: 1999
  2. GLOPIDOGREL [Concomitant]
     Dosage: NOT REPORTED NR
     Dates: start: 1999
  3. LAMOTRIGINE. [Concomitant]
     Active Substance: LAMOTRIGINE
     Dosage: NOT REPORTED NR
     Dates: start: 1999
  4. LISINOPRIL. [Suspect]
     Active Substance: LISINOPRIL
     Dosage: NOT REPORTED NR
     Route: 048
     Dates: start: 1999
  5. METFORMIN [Concomitant]
     Active Substance: METFORMIN HYDROCHLORIDE
     Dosage: NOT REPORTED NR
     Dates: start: 1999
  6. EMLODIPINE [Concomitant]
     Dosage: NOT REPORTED NR
     Dates: start: 1999
  7. GLYBURIDE. [Concomitant]
     Active Substance: GLYBURIDE
     Dosage: 5M NR
     Dates: start: 1999
  8. APORDASTATIN [Concomitant]
     Dosage: NOT REPORTED NR
     Dates: start: 1999

REACTIONS (5)
  - Adverse event [Unknown]
  - Cerebrovascular accident [Unknown]
  - Cardiac disorder [Unknown]
  - Hypertension [Not Recovered/Not Resolved]
  - Blood cholesterol abnormal [Unknown]
